FAERS Safety Report 4471999-2 (Version None)
Quarter: 2004Q4

REPORT INFORMATION
  Report Type: 
  Country: None (occurrence: None)
  Receive Date: 20041007
  Receipt Date: 20040927
  Transmission Date: 20050328
  Serious: Yes (Hospitalization)
  Sender: FDA-Public Use
  Company Number: 2004PK01601

PATIENT
  Age: 88 Year
  Sex: Male

DRUGS (1)
  1. SEROQUEL [Suspect]
     Indication: SENILE DEMENTIA
     Dosage: 25 MG DAILY PO
     Route: 048
     Dates: start: 20040605, end: 20040605

REACTIONS (8)
  - BLOOD CREATINE PHOSPHOKINASE INCREASED [None]
  - CLOSTRIDIUM COLITIS [None]
  - HYPOTENSION [None]
  - OVERDOSE [None]
  - POSTRENAL FAILURE [None]
  - SOMNOLENCE [None]
  - STAPHYLOCOCCAL INFECTION [None]
  - URINARY RETENTION [None]
